FAERS Safety Report 7435661-6 (Version None)
Quarter: 2011Q2

REPORT INFORMATION
  Report Type: 
  Country: None (occurrence: None)
  Receive Date: 20110425
  Receipt Date: 20110419
  Transmission Date: 20111010
  Serious: Yes (Hospitalization)
  Sender: FDA-Public Use
  Company Number: CA-PFIZER INC-2010070066

PATIENT
  Sex: Female
  Weight: 82.993 kg

DRUGS (3)
  1. CALCIUM CARBONATE [Concomitant]
     Dosage: UNK
  2. ACETAMINOPHEN [Concomitant]
     Dosage: UNK
  3. LIPITOR [Suspect]
     Indication: BLOOD CHOLESTEROL INCREASED
     Dosage: 20 MG, 1X/DAY
     Route: 048
     Dates: start: 20021111, end: 20021121

REACTIONS (8)
  - PRURITUS [None]
  - PYREXIA [None]
  - VOMITING [None]
  - CHILLS [None]
  - LEUKOCYTOSIS [None]
  - NAUSEA [None]
  - LUNG INFILTRATION [None]
  - RASH [None]
